FAERS Safety Report 15423762 (Version 1)
Quarter: 2018Q3

REPORT INFORMATION
  Report Type: Report from Study
  Country: US (occurrence: US)
  Receive Date: 20180925
  Receipt Date: 20180925
  Transmission Date: 20181010
  Serious: No
  Sender: FDA-Public Use
  Company Number: PHHY2018US106600

PATIENT
  Age: 14 Year
  Sex: Female

DRUGS (1)
  1. GILENYA [Suspect]
     Active Substance: FINGOLIMOD HYDROCHLORIDE
     Indication: MULTIPLE SCLEROSIS
     Dosage: 0.5 MG, QD
     Route: 048
     Dates: start: 20180702

REACTIONS (4)
  - Ear pain [Not Recovered/Not Resolved]
  - Fatigue [Recovered/Resolved]
  - Heart rate decreased [Recovered/Resolved]
  - Pharyngitis streptococcal [Not Recovered/Not Resolved]

NARRATIVE: CASE EVENT DATE: 20180702
